FAERS Safety Report 5100736-3 (Version None)
Quarter: 2006Q3

REPORT INFORMATION
  Report Type: 
  Country: None (occurrence: None)
  Receive Date: 20060906
  Receipt Date: 20060822
  Transmission Date: 20061208
  Serious: Yes (Death, Hospitalization)
  Sender: FDA-Public Use
  Company Number: US-2006-018708

PATIENT
  Age: 38 Year
  Sex: Female

DRUGS (4)
  1. CAMPATH [Suspect]
     Indication: ALLOGENIC BONE MARROW TRANSPLANTATION THERAPY
     Dosage: 50 MG, D-7 TO D-3, INTRAVENOUS
     Route: 042
     Dates: start: 20060621, end: 20060625
  2. FLUDARA [Suspect]
     Indication: ALLOGENIC BONE MARROW TRANSPLANTATION THERAPY
     Dosage: 25 MG/M2, D-5 TO D, INTRAVENOUS
     Route: 042
     Dates: start: 20060623, end: 20060627
  3. CYCLOPHOSPHAMIDE [Suspect]
     Indication: ALLOGENIC BONE MARROW TRANSPLANTATION THERAPY
     Dosage: 45 MG/KG, D-4, D-3, INTRAVENOUS
     Route: 042
     Dates: start: 20060624, end: 20060625
  4. MESNA [Suspect]
     Indication: PROPHYLAXIS
     Dosage: 48 MG/KG, 1X/DAY, INTRAVENOUS
     Route: 042
     Dates: start: 20060624, end: 20060625

REACTIONS (12)
  - CARDIO-RESPIRATORY ARREST [None]
  - DIALYSIS [None]
  - GENERAL PHYSICAL HEALTH DETERIORATION [None]
  - HODGKIN'S DISEASE [None]
  - LUNG INFECTION [None]
  - MALIGNANT NEOPLASM PROGRESSION [None]
  - PLATELET COUNT DECREASED [None]
  - PLEURAL EFFUSION [None]
  - PULMONARY HAEMORRHAGE [None]
  - RENAL FAILURE [None]
  - RESPIRATORY FAILURE [None]
  - WHITE BLOOD CELL COUNT DECREASED [None]
